FAERS Safety Report 17790387 (Version 1)
Quarter: 2020Q2

REPORT INFORMATION
  Report Type: Spontaneous
  Country: ES (occurrence: ES)
  Receive Date: 20200515
  Receipt Date: 20200515
  Transmission Date: 20200714
  Serious: Yes (Disabling)
  Sender: FDA-Public Use
  Company Number: NVSC2020ES130054

PATIENT
  Age: 9 Year
  Sex: Male

DRUGS (1)
  1. AMOXICILINA TRIHYDRATE + CLAVULANATO DE POTASSIO [Suspect]
     Active Substance: AMOXICILLIN\CLAVULANIC ACID
     Indication: EAR INFECTION
     Dosage: 22.5 ML, QD (7.5 ML 3 TIMES/DAY (EVERY 8 HOURS))
     Route: 048
     Dates: start: 20200122, end: 20200129

REACTIONS (7)
  - Oropharyngeal pain [Recovered/Resolved]
  - Dyspnoea [Recovering/Resolving]
  - Oropharyngeal pain [Recovering/Resolving]
  - Oral pruritus [Recovering/Resolving]
  - Ageusia [Recovering/Resolving]
  - Ear pain [Recovered/Resolved]
  - Oral pain [Recovering/Resolving]

NARRATIVE: CASE EVENT DATE: 20200128
